FAERS Safety Report 12346622 (Version 7)
Quarter: 2019Q4

REPORT INFORMATION
  Report Type: Spontaneous
  Country: US (occurrence: US)
  Receive Date: 20160509
  Receipt Date: 20191022
  Transmission Date: 20200122
  Serious: Yes (Other)
  Sender: FDA-Public Use
  Company Number: US-PFIZER INC-2016150950

PATIENT
  Age: 26 Year
  Sex: Male

DRUGS (1)
  1. BENEFIX [Suspect]
     Active Substance: COAGULATION FACTOR IX RECOMBINANT HUMAN\ISOPROPYL ALCOHOL
     Indication: FACTOR IX DEFICIENCY
     Dosage: 7300 IU, AS NEEDED [+/-10%]
     Route: 042

REACTIONS (6)
  - Skull fracture [Unknown]
  - Lower limb fracture [Unknown]
  - Accident [Unknown]
  - Facial bones fracture [Unknown]
  - Toothache [Unknown]
  - Multiple fractures [Unknown]

NARRATIVE: CASE EVENT DATE: 201908
